FAERS Safety Report 6055545-8 (Version None)
Quarter: 2009Q1

REPORT INFORMATION
  Report Type: 
  Country: None (occurrence: None)
  Receive Date: 20090128
  Receipt Date: 20090119
  Transmission Date: 20090719
  Serious: Yes (Death)
  Sender: FDA-Public Use
  Company Number: B0554938A

PATIENT
  Age: 69 Year
  Sex: Female

DRUGS (4)
  1. ARIXTRA [Suspect]
     Dosage: 2.5MG PER DAY
     Route: 058
     Dates: start: 20081018, end: 20081029
  2. ROCEPHIN [Concomitant]
     Route: 065
  3. CIFLOX [Concomitant]
     Route: 065
  4. HYDROCORTISONE [Concomitant]
     Route: 065

REACTIONS (3)
  - CEREBRAL HAEMORRHAGE [None]
  - HYPERTENSIVE CRISIS [None]
  - ISCHAEMIC STROKE [None]
